FAERS Safety Report 5021152-9 (Version None)
Quarter: 2006Q2

REPORT INFORMATION
  Report Type: 
  Country: None (occurrence: None)
  Receive Date: 20060608
  Receipt Date: 20060530
  Transmission Date: 20061013
  Serious: Yes (Hospitalization)
  Sender: FDA-Public Use
  Company Number: 2006AP02413

PATIENT
  Age: 25443 Day
  Sex: Female
  Weight: 60 kg

DRUGS (1)
  1. NEXIUM [Suspect]
     Indication: GASTRIC ULCER
     Route: 048
     Dates: start: 20060512

REACTIONS (2)
  - ARTHRITIS [None]
  - CEREBROVASCULAR ACCIDENT [None]
